FAERS Safety Report 24411606 (Version 1)
Quarter: 2024Q4

REPORT INFORMATION
  Report Type: Spontaneous
  Country: US (occurrence: US)
  Receive Date: 20241008
  Receipt Date: 20241008
  Transmission Date: 20250114
  Serious: No
  Sender: CELLTRION
  Company Number: US-CELLTRION INC.-2024US005874

PATIENT

DRUGS (2)
  1. INFLECTRA [Suspect]
     Active Substance: INFLIXIMAB-DYYB
     Indication: Crohn^s disease
     Dosage: AT 6 WEEKS INSTEAD OF EVERY 8 WEEKS
     Route: 065
     Dates: start: 202205
  2. INFLECTRA [Suspect]
     Active Substance: INFLIXIMAB-DYYB
     Dosage: 10 MG/KG EVERY 6 WEEKS
     Dates: start: 202309

REACTIONS (3)
  - Drug level below therapeutic [Unknown]
  - Drug level decreased [Unknown]
  - Incorrect dose administered [Unknown]
